FAERS Safety Report 7604366-0 (Version None)
Quarter: 2011Q3

REPORT INFORMATION
  Report Type: 
  Country: None (occurrence: None)
  Receive Date: 20110712
  Receipt Date: 20110629
  Transmission Date: 20111222
  Serious: Yes (Other)
  Sender: FDA-Public Use
  Company Number: PHHY2011US27971

PATIENT
  Sex: Female

DRUGS (5)
  1. VITAMIN D [Concomitant]
     Dosage: UNK
  2. CALCIUM CARBONATE [Concomitant]
     Dosage: UNK
  3. VITAMIN TAB [Concomitant]
     Dosage: UNK
  4. RECLAST [Suspect]
     Dosage: 5 MG, YEARLY
     Route: 042
     Dates: start: 20110224
  5. FISH OIL [Concomitant]
     Dosage: UNK

REACTIONS (15)
  - MUSCLE TIGHTNESS [None]
  - INSOMNIA [None]
  - MUSCLE SPASMS [None]
  - PAIN IN JAW [None]
  - ARTHRALGIA [None]
  - GAIT DISTURBANCE [None]
  - HEADACHE [None]
  - CHEST PAIN [None]
  - RHEUMATOID ARTHRITIS [None]
  - BACK PAIN [None]
  - MOVEMENT DISORDER [None]
  - PAIN IN EXTREMITY [None]
  - PAIN [None]
  - BURNING SENSATION [None]
  - DYSSTASIA [None]
